FAERS Safety Report 5307418-3 (Version None)
Quarter: 2007Q2

REPORT INFORMATION
  Report Type: 
  Country: None (occurrence: None)
  Receive Date: 20070425
  Receipt Date: 20070411
  Transmission Date: 20071010
  Serious: Yes (Other)
  Sender: FDA-Public Use
  Company Number: PL-ROCHE-494190

PATIENT
  Age: 15 Year
  Sex: Female

DRUGS (3)
  1. RIBAVIRIN [Suspect]
     Route: 065
  2. RIBAVIRIN [Suspect]
     Dosage: AFTER TWO MONTHS OF THERAPY, THE DOSE OF RIBAVIRIN WAS REDUCED TO 600MG/DAY THEN DISCONTINUED.
     Route: 065
  3. PEG-INTERFERON ALFA 2B [Suspect]
     Route: 065

REACTIONS (4)
  - ANAEMIA [None]
  - LIVER TRANSPLANT REJECTION [None]
  - RENAL IMPAIRMENT [None]
  - TRANSPLANT REJECTION [None]
